FAERS Safety Report 12439685 (Version 1)
Quarter: 2016Q2

REPORT INFORMATION
  Report Type: Spontaneous
  Country: IT (occurrence: IT)
  Receive Date: 20160606
  Receipt Date: 20160606
  Transmission Date: 20160815
  Serious: Yes (Disabling, Other)
  Sender: FDA-Public Use
  Company Number: IT-ACTAVIS-2016-11383

PATIENT
  Age: 12 Year
  Sex: Female

DRUGS (3)
  1. VALPROIC ACID. [Concomitant]
     Active Substance: VALPROIC ACID
     Indication: AUTOSOMAL CHROMOSOME ANOMALY
     Dosage: UNK
     Route: 065
  2. CLOBAZAM [Concomitant]
     Active Substance: CLOBAZAM
     Indication: AUTOSOMAL CHROMOSOME ANOMALY
  3. CARBAMAZEPINE (UNKNOWN) [Suspect]
     Active Substance: CARBAMAZEPINE
     Indication: AUTOSOMAL CHROMOSOME ANOMALY
     Dosage: UNK
     Route: 065

REACTIONS (5)
  - Idiosyncratic drug reaction [Recovered/Resolved]
  - Withdrawal syndrome [Recovered/Resolved]
  - Depression [Recovered/Resolved]
  - Vasculitis [Recovered/Resolved]
  - Psychotic disorder [Recovered/Resolved]
